FAERS Safety Report 6836719-2 (Version None)
Quarter: 2010Q3

REPORT INFORMATION
  Report Type: 
  Country: None (occurrence: None)
  Receive Date: 20100708
  Receipt Date: 20100623
  Transmission Date: 20110219
  Serious: Yes (Death)
  Sender: FDA-Public Use
  Company Number: 2010S1000069

PATIENT
  Age: 27 Year
  Sex: Female

DRUGS (2)
  1. INOMAX [Suspect]
     Indication: PULMONARY ARTERIAL PRESSURE
     Dosage: 40 PPM; CONT INH; 55 PPM; CONT; INH,
  2. INCOVENT (DELIVERY SYSTEM) [Concomitant]
     Indication: PULMONARY ARTERIAL PRESSURE INCREASED

REACTIONS (4)
  - CARDIAC FAILURE [None]
  - DEVICE MALFUNCTION [None]
  - NO THERAPEUTIC RESPONSE [None]
  - UNEVALUABLE EVENT [None]
